FAERS Safety Report 8136828-4 (Version None)
Quarter: 2012Q1

REPORT INFORMATION
  Report Type: 
  Country: None (occurrence: None)
  Receive Date: 20120214
  Receipt Date: 20120210
  Transmission Date: 20120608
  Serious: Yes (Hospitalization, Other)
  Sender: FDA-Public Use
  Company Number: US-AMGEN-USASP2011047358

PATIENT
  Age: 64 Year
  Sex: Female
  Weight: 86.168 kg

DRUGS (2)
  1. ENBREL [Suspect]
     Dosage: 50 MG, QWK
     Dates: start: 20110324, end: 20110701
  2. ENBREL [Suspect]
     Indication: PRODUCT USED FOR UNKNOWN INDICATION
     Dosage: 50 MG, QWK
     Route: 058
     Dates: start: 20110330, end: 20111114

REACTIONS (5)
  - PNEUMONIA [None]
  - INFECTION [None]
  - SINUSITIS [None]
  - MASS [None]
  - GOUT [None]
